FAERS Safety Report 6053469-3 (Version None)
Quarter: 2009Q1

REPORT INFORMATION
  Report Type: 
  Country: None (occurrence: None)
  Receive Date: 20090127
  Receipt Date: 20080502
  Transmission Date: 20090719
  Serious: No
  Sender: FDA-Public Use
  Company Number: US-TEVA-171143USA

PATIENT
  Sex: Female
  Weight: 105.33 kg

DRUGS (5)
  1. COPAXONE [Suspect]
     Indication: MULTIPLE SCLEROSIS
     Route: 058
     Dates: start: 20080425
  2. METHYLPREDNISOLONE SODIUM SUCCINATE [Concomitant]
     Indication: MUSCULAR WEAKNESS
     Route: 042
     Dates: start: 20080429, end: 20080429
  3. METHYLPREDNISOLONE SODIUM SUCCINATE [Concomitant]
     Route: 042
     Dates: start: 20080501, end: 20080501
  4. NAPROXEN SODIUM [Concomitant]
  5. LORATADINE [Concomitant]

REACTIONS (2)
  - HYPERTENSION [None]
  - RASH GENERALISED [None]
